FAERS Safety Report 4479996-8 (Version None)
Quarter: 2004Q3

REPORT INFORMATION
  Report Type: 
  Country: None (occurrence: None)
  Receive Date: 20040930
  Receipt Date: 20040712
  Transmission Date: 20050211
  Serious: No
  Sender: FDA-Public Use
  Company Number: 200410150BBE

PATIENT
  Age: 14 Year
  Sex: Male
  Weight: 83.9154 kg

DRUGS (3)
  1. GAMUNEX [Suspect]
     Indication: HYPOGAMMAGLOBULINAEMIA
     Dosage: 20 G, Q1MON, INTRAVENOUS
     Route: 042
     Dates: start: 20040608
  2. GAMUNEX [Suspect]
     Indication: IMMUNODEFICIENCY COMMON VARIABLE
     Dosage: 20 G, Q1MON, INTRAVENOUS
     Route: 042
     Dates: start: 20040608
  3. ZYRTEC [Concomitant]

REACTIONS (6)
  - ARTHRALGIA [None]
  - FATIGUE [None]
  - HYPERSENSITIVITY [None]
  - PHARMACEUTICAL PRODUCT COMPLAINT [None]
  - RASH [None]
  - TYPE III IMMUNE COMPLEX MEDIATED REACTION [None]
